FAERS Safety Report 7906316-6 (Version None)
Quarter: 2011Q4

REPORT INFORMATION
  Report Type: 
  Country: None (occurrence: None)
  Receive Date: 20111109
  Receipt Date: 20111109
  Transmission Date: 20120403
  Serious: Yes (Other)
  Sender: FDA-Public Use
  Company Number: None

PATIENT
  Sex: Male

DRUGS (1)
  1. INTUNIV [Suspect]
     Indication: ATTENTION DEFICIT/HYPERACTIVITY DISORDER
     Dosage: 2 MG ONCE DAILY PO
     Route: 048
     Dates: start: 20101201, end: 20110701

REACTIONS (4)
  - DEPRESSION [None]
  - EDUCATIONAL PROBLEM [None]
  - IRRITABILITY [None]
  - FATIGUE [None]
